FAERS Safety Report 7593610-4 (Version None)
Quarter: 2011Q3

REPORT INFORMATION
  Report Type: 
  Country: None (occurrence: None)
  Receive Date: 20110706
  Receipt Date: 20110627
  Transmission Date: 20111222
  Serious: Yes (Other)
  Sender: FDA-Public Use
  Company Number: PHHY2011KR59357

PATIENT
  Age: 29 Year
  Sex: Female

DRUGS (5)
  1. VALPROIC ACID [Suspect]
     Indication: MANIA
     Dosage: 900 MG, BID
  2. QUETIAPINE [Interacting]
     Indication: MANIA
     Dosage: 800 MG, BID
  3. VALPROIC ACID [Interacting]
     Dosage: 900 MG, QD
  4. CLONAZEPAM [Concomitant]
     Dosage: UNK
  5. QUETIAPINE [Interacting]
     Dosage: 400 MG, QD

REACTIONS (1)
  - HYPOTHYROIDISM [None]
